FAERS Safety Report 4887170-6 (Version None)
Quarter: 2005Q4

REPORT INFORMATION
  Report Type: 
  Country: None (occurrence: None)
  Receive Date: 20051223
  Receipt Date: 20050706
  Transmission Date: 20060501
  Serious: Yes (Hospitalization, Other)
  Sender: FDA-Public Use
  Company Number: US_001255892

PATIENT
  Age: 73 Year
  Sex: Male
  Weight: 88 kg

DRUGS (5)
  1. HUMULIN 70/30 [Suspect]
     Indication: INSULIN-REQUIRING TYPE II DIABETES MELLITUS
     Dosage: 13 U/1 IN THE MORNING
     Dates: start: 19950101
  2. INSULIN [Suspect]
     Indication: DIABETES MELLITUS
     Dates: start: 20000101, end: 20040101
  3. HUMULIN N [Suspect]
     Indication: DIABETES MELLITUS
     Dosage: 13 U/ 1 IN THE EVENING
     Dates: start: 19950101
  4. HUMULIN R [Suspect]
     Indication: DIABETES MELLITUS
  5. HUMALOG [Suspect]
     Indication: DIABETES MELLITUS
     Dates: start: 20040629

REACTIONS (6)
  - ARTHROPOD BITE [None]
  - BLOOD GLUCOSE INCREASED [None]
  - CEREBROVASCULAR ACCIDENT [None]
  - DEMENTIA [None]
  - FATIGUE [None]
  - SPEECH DISORDER [None]
